FAERS Safety Report 7443228-9 (Version None)
Quarter: 2011Q2

REPORT INFORMATION
  Report Type: 
  Country: None (occurrence: None)
  Receive Date: 20110428
  Receipt Date: 20110418
  Transmission Date: 20111010
  Serious: Yes (Hospitalization)
  Sender: FDA-Public Use
  Company Number: B0714879A

PATIENT
  Sex: Male

DRUGS (8)
  1. CIMETIDINE [Concomitant]
     Dosage: 2IUAX PER DAY
     Route: 048
     Dates: end: 20110408
  2. MYSLEE [Concomitant]
     Indication: INSOMNIA
     Dosage: 10MG PER DAY
     Route: 048
     Dates: end: 20110408
  3. AMBROXOL HYDROCHLORIDE [Concomitant]
     Dosage: 2IUAX PER DAY
     Route: 048
     Dates: end: 20110408
  4. GASOAL [Concomitant]
     Dosage: 3IUAX PER DAY
     Route: 048
     Dates: end: 20110408
  5. PAXIL [Suspect]
     Indication: ANXIETY
     Dosage: 20MG PER DAY
     Route: 048
     Dates: start: 20090729, end: 20110408
  6. DORAL [Concomitant]
     Indication: INSOMNIA
     Dosage: 30MG PER DAY
     Route: 048
     Dates: end: 20110408
  7. LEXOTAN [Concomitant]
     Indication: ANXIETY
     Dosage: 5MG PER DAY
     Route: 048
     Dates: end: 20110408
  8. DEPAKENE [Concomitant]
     Dosage: 1IUAX PER DAY
     Route: 048
     Dates: end: 20110408

REACTIONS (11)
  - PYREXIA [None]
  - BLOOD PRESSURE DECREASED [None]
  - SEPTIC SHOCK [None]
  - WHITE BLOOD CELL COUNT INCREASED [None]
  - ALTERED STATE OF CONSCIOUSNESS [None]
  - OLIGURIA [None]
  - RENAL IMPAIRMENT [None]
  - NEUROLEPTIC MALIGNANT SYNDROME [None]
  - PLATELET COUNT DECREASED [None]
  - ALANINE AMINOTRANSFERASE INCREASED [None]
  - BLOOD LACTATE DEHYDROGENASE INCREASED [None]
